FAERS Safety Report 8628636 (Version 5)
Quarter: 2014Q2

REPORT INFORMATION
  Report Type: Report from Study
  Country: CA (occurrence: CA)
  Receive Date: 20120621
  Receipt Date: 20140403
  Transmission Date: 20141212
  Serious: Yes (Hospitalization, Other)
  Sender: FDA-Public Use
  Company Number: CA-ROCHE-1078891

PATIENT
  Age: 33 Year
  Sex: Female
  Weight: 83.9 kg

DRUGS (8)
  1. RITUXAN [Suspect]
     Indication: RHEUMATOID ARTHRITIS
     Dosage: FREQUENCY DAY 1 AND DAY 15
     Route: 042
     Dates: start: 20100617
  2. RITUXAN [Suspect]
     Route: 065
     Dates: start: 20130607
  3. METHOTREXATE [Concomitant]
     Route: 065
  4. PREDNISONE [Concomitant]
     Route: 065
  5. MORPHINE [Concomitant]
     Route: 065
  6. DIPHENHYDRAMINE HCL [Concomitant]
     Route: 048
     Dates: start: 20100617
  7. ACETAMINOPHEN [Concomitant]
     Route: 048
     Dates: start: 20100617
  8. METHYLPREDNISOLONE [Concomitant]
     Route: 042
     Dates: start: 20100617

REACTIONS (6)
  - Abdominal wall disorder [Unknown]
  - Cellulitis [Unknown]
  - Ulcer [Unknown]
  - Ankle operation [Unknown]
  - Foot operation [Unknown]
  - Nasopharyngitis [Unknown]
